FAERS Safety Report 7831521-7 (Version None)
Quarter: 2011Q4

REPORT INFORMATION
  Report Type: 
  Country: None (occurrence: None)
  Receive Date: 20111021
  Receipt Date: 20111018
  Transmission Date: 20120403
  Serious: Yes (Death, Other)
  Sender: FDA-Public Use
  Company Number: PHHY2011GB91496

PATIENT
  Age: 75 Year
  Sex: Male

DRUGS (3)
  1. CLOPIDOGREL [Suspect]
     Indication: ACUTE CORONARY SYNDROME
  2. FONDAPARINUX SODIUM [Suspect]
     Indication: ACUTE CORONARY SYNDROME
     Route: 058
  3. ASPIRIN [Suspect]
     Indication: ACUTE CORONARY SYNDROME

REACTIONS (7)
  - HAEMORRHAGE [None]
  - CEREBROVASCULAR ACCIDENT [None]
  - VIITH NERVE PARALYSIS [None]
  - DYSARTHRIA [None]
  - CIRCULATORY COLLAPSE [None]
  - VISUAL IMPAIRMENT [None]
  - MUSCULAR WEAKNESS [None]
